FAERS Safety Report 4278155-1 (Version None)
Quarter: 2004Q1

REPORT INFORMATION
  Report Type: 
  Country: None (occurrence: None)
  Receive Date: 20040121
  Receipt Date: 20040109
  Transmission Date: 20041129
  Serious: Yes (Other)
  Sender: FDA-Public Use
  Company Number: 204134

PATIENT
  Age: 44 Year
  Sex: Female

DRUGS (1)
  1. RITUXAN [Suspect]
     Indication: NON-HODGKIN'S LYMPHOMA
     Dosage: 600 MG
     Dates: start: 20020212, end: 20020225

REACTIONS (2)
  - ERYTHEMA MULTIFORME [None]
  - HYPOTENSION [None]
